FAERS Safety Report 5457432-2 (Version None)
Quarter: 2007Q3

REPORT INFORMATION
  Report Type: 
  Country: None (occurrence: None)
  Receive Date: 20070918
  Receipt Date: 20070906
  Transmission Date: 20080115
  Serious: Yes (Hospitalization)
  Sender: FDA-Public Use
  Company Number: JP-PFIZER INC-2007073197

PATIENT
  Age: 39 Year
  Sex: Female

DRUGS (3)
  1. DALACIN S [Suspect]
     Indication: PHARYNGOLARYNGEAL PAIN
     Route: 042
  2. OFLOXACIN [Concomitant]
     Indication: PHARYNGOLARYNGEAL PAIN
     Route: 048
  3. MUCOSTA [Concomitant]
     Indication: PHARYNGOLARYNGEAL PAIN
     Route: 048

REACTIONS (2)
  - ERYTHEMA [None]
  - SWELLING FACE [None]
